FAERS Safety Report 6446869-0 (Version None)
Quarter: 2009Q4

REPORT INFORMATION
  Report Type: 
  Country: None (occurrence: None)
  Receive Date: 20091119
  Receipt Date: 20091111
  Transmission Date: 20100525
  Serious: Yes (Other)
  Sender: FDA-Public Use
  Company Number: US-B.I. PHARMACEUTICALS,INC./RIDGEFIELD-2009-BP-02395BP

PATIENT
  Age: 37 Year
  Sex: Female

DRUGS (4)
  1. MIRAPEX [Suspect]
     Indication: RESTLESS LEGS SYNDROME
     Dates: start: 20060101
  2. TRAZODONE HCL [Concomitant]
  3. PROZAC [Concomitant]
  4. LAMICTAL [Concomitant]

REACTIONS (1)
  - ABORTION SPONTANEOUS [None]
